FAERS Safety Report 12447551 (Version 1)
Quarter: 2016Q2

REPORT INFORMATION
  Report Type: Spontaneous
  Country: EC (occurrence: None)
  Receive Date: 20160607
  Receipt Date: 20160607
  Transmission Date: 20160815
  Serious: Yes (Other)
  Sender: FDA-Public Use
  Company Number: None

PATIENT
  Age: 36 Year
  Sex: Male
  Weight: 80 kg

DRUGS (1)
  1. HYDROXYUREA. [Suspect]
     Active Substance: HYDROXYUREA
     Indication: POLYCYTHAEMIA VERA
     Route: 048
     Dates: start: 20160501, end: 20160521

REACTIONS (6)
  - Asthenia [None]
  - Diarrhoea [None]
  - Decreased appetite [None]
  - Nausea [None]
  - Abdominal pain [None]
  - Ocular hyperaemia [None]

NARRATIVE: CASE EVENT DATE: 20160515
